FAERS Safety Report 5083945-1 (Version None)
Quarter: 2006Q3

REPORT INFORMATION
  Report Type: 
  Country: None (occurrence: None)
  Receive Date: 20060727
  Receipt Date: 20060522
  Transmission Date: 20061208
  Serious: Yes (Other)
  Sender: FDA-Public Use
  Company Number: 2006068098

PATIENT
  Age: 84 Year
  Sex: Female
  Weight: 62.1428 kg

DRUGS (13)
  1. LYRICA [Suspect]
     Indication: FEELING ABNORMAL
     Dosage: 100 MG (50 MG, 2 IN 1 D), ORAL
     Route: 048
     Dates: start: 20060101
  2. METHOTREXATE [Suspect]
     Indication: CHEST DISCOMFORT
  3. METHOTREXATE [Suspect]
     Indication: ILL-DEFINED DISORDER
  4. NORVASC [Concomitant]
  5. BENICAR [Concomitant]
  6. TORSEMIDE [Concomitant]
  7. LOPRESSOR [Concomitant]
  8. TIMOPTIC [Concomitant]
  9. SUCRALFATE [Concomitant]
  10. FOLIC ACID [Concomitant]
  11. OCUVITE PRESERVISION (ASCORBIC ACID, COPPER, RETINOL, TOCOPHEROL, ZINC [Concomitant]
  12. ASPIRIN [Concomitant]
  13. ACETAMINOPHEN [Concomitant]

REACTIONS (1)
  - HEADACHE [None]
